FAERS Safety Report 7019630-6 (Version None)
Quarter: 2010Q3

REPORT INFORMATION
  Report Type: 
  Country: None (occurrence: None)
  Receive Date: 20100928
  Receipt Date: 20100928
  Transmission Date: 20110219
  Serious: Yes (Other)
  Sender: FDA-Public Use
  Company Number: None

PATIENT
  Sex: Female

DRUGS (6)
  1. HCTZ 12.5 MG [Suspect]
     Indication: BLOOD POTASSIUM INCREASED
     Dosage: 1 TABLET DAILY BEFORE 6PM PO
     Route: 048
     Dates: start: 20100920, end: 20100925
  2. ENABLEX [Concomitant]
  3. SPIRONOLACTONE [Concomitant]
  4. 2 GLACEAU VITAMIN WATER - ENERGY [Concomitant]
  5. TROPICAL CITRUS [Concomitant]
  6. NATURAL CAFFINE [Concomitant]

REACTIONS (6)
  - ABASIA [None]
  - ACTIVITIES OF DAILY LIVING IMPAIRED [None]
  - DIZZINESS [None]
  - HYPERHIDROSIS [None]
  - PARKINSONIAN GAIT [None]
  - TREMOR [None]
